FAERS Safety Report 4663658-8 (Version None)
Quarter: 2005Q2

REPORT INFORMATION
  Report Type: 
  Country: None (occurrence: None)
  Receive Date: 20050513
  Receipt Date: 20050426
  Transmission Date: 20051028
  Serious: Yes (Death, Life-Threatening, Other)
  Sender: FDA-Public Use
  Company Number: HQWYE039415APR05

PATIENT
  Age: 55 Year
  Sex: Female

DRUGS (18)
  1. MYLOTARG [Suspect]
     Indication: ACUTE MYELOID LEUKAEMIA
     Dosage: 15 MG 1X PER 1 DAY, INTRAVENOUS
     Route: 042
     Dates: start: 20050401, end: 20050401
  2. ACYCLOVIR [Concomitant]
  3. ACETAMINOPHEN [Concomitant]
  4. DIGOXIN [Concomitant]
  5. DIPHENHYDRAMINE HCL [Concomitant]
  6. PREDNISONE [Concomitant]
  7. ALDACTONE [Concomitant]
  8. VANCOMYCIN [Concomitant]
  9. CANCIDAS [Concomitant]
  10. PANTOPRAZOLE SODIUM [Concomitant]
  11. MAGNESIUM SULFATE [Concomitant]
  12. CEFEPIME (CEFEPIME) [Concomitant]
  13. TOBRAMYCIN [Concomitant]
  14. POTASSIUM CHLORIDE [Concomitant]
  15. ATIVAN [Concomitant]
  16. LISINOPRIL [Concomitant]
  17. LEVOTHYROXINE SODIUM [Concomitant]
  18. FLAGYL [Concomitant]

REACTIONS (30)
  - ABDOMINAL DISTENSION [None]
  - ABDOMINAL PAIN [None]
  - ACTIVATED PARTIAL THROMBOPLASTIN TIME PROLONGED [None]
  - ALANINE AMINOTRANSFERASE INCREASED [None]
  - ASPARTATE AMINOTRANSFERASE INCREASED [None]
  - BLOOD ALKALINE PHOSPHATASE INCREASED [None]
  - BLOOD BILIRUBIN INCREASED [None]
  - BLOOD CREATININE INCREASED [None]
  - BLOOD FIBRINOGEN INCREASED [None]
  - BLOOD GLUCOSE INCREASED [None]
  - BLOOD LACTATE DEHYDROGENASE INCREASED [None]
  - BLOOD POTASSIUM DECREASED [None]
  - BLOOD POTASSIUM INCREASED [None]
  - BLOOD SODIUM INCREASED [None]
  - CHOLECYSTITIS [None]
  - COAGULOPATHY [None]
  - CONFUSIONAL STATE [None]
  - DELIRIUM [None]
  - ENCEPHALOPATHY [None]
  - GENERAL PHYSICAL HEALTH DETERIORATION [None]
  - HEPATOMEGALY [None]
  - LOSS OF CONSCIOUSNESS [None]
  - MULTI-ORGAN FAILURE [None]
  - NAUSEA [None]
  - PLATELET COUNT DECREASED [None]
  - PROTHROMBIN TIME PROLONGED [None]
  - RENAL FAILURE [None]
  - RESPIRATORY FAILURE [None]
  - VENOOCCLUSIVE LIVER DISEASE [None]
  - VOMITING [None]
